FAERS Safety Report 5746806-8 (Version None)
Quarter: 2008Q2

REPORT INFORMATION
  Report Type: 
  Country: None (occurrence: None)
  Receive Date: 20080520
  Receipt Date: 20080502
  Transmission Date: 20081010
  Serious: Yes (Hospitalization)
  Sender: FDA-Public Use
  Company Number: JPI-P-003589

PATIENT
  Age: 31 Year
  Sex: Male

DRUGS (5)
  1. LUVOX [Suspect]
     Indication: DEPRESSION
     Dosage: ORAL
     Route: 048
  2. NITRAZEPAM [Suspect]
     Dosage: ORAL
     Route: 048
  3. MILNACIPRAN HYDROCHLORIDE (MILNACIPRAN HYDROCHLORIDE) [Suspect]
     Dosage: ORAL
     Route: 048
  4. CLOTIAZEPAM (CLOTIAZEPAM) [Concomitant]
  5. ZOLPIDEM TARTRATE [Concomitant]

REACTIONS (5)
  - ENCEPHALOPATHY [None]
  - GALLBLADDER DISORDER [None]
  - HEPATIC CIRRHOSIS [None]
  - HEPATITIS FULMINANT [None]
  - LIVER INJURY [None]
